FAERS Safety Report 22255671 (Version 1)
Quarter: 2023Q2

REPORT INFORMATION
  Report Type: Spontaneous
  Country: US (occurrence: None)
  Receive Date: 20230426
  Receipt Date: 20230426
  Transmission Date: 20230722
  Serious: Yes (Other)
  Sender: FDA-Public Use
  Company Number: None

PATIENT
  Age: 65 Year
  Sex: Female
  Weight: 69.3 kg

DRUGS (8)
  1. TRAMADOL [Suspect]
     Active Substance: TRAMADOL
     Indication: Sacroiliitis
     Dosage: FREQUENCY : 4 TIMES A DAY;?
     Route: 048
     Dates: start: 20230423, end: 20230423
  2. TRAMADOL [Suspect]
     Active Substance: TRAMADOL
     Indication: Pain
  3. DEVICE\INSULIN NOS [Concomitant]
     Active Substance: DEVICE\INSULIN NOS
  4. PREDNISONE [Concomitant]
     Active Substance: PREDNISONE
  5. LOSARTAN [Concomitant]
     Active Substance: LOSARTAN
  6. DIETARY SUPPLEMENT [Concomitant]
     Active Substance: DIETARY SUPPLEMENT
  7. sunflower lecithin [Concomitant]
  8. DIETARY SUPPLEMENT [Concomitant]
     Active Substance: DIETARY SUPPLEMENT

REACTIONS (6)
  - Vision blurred [None]
  - Presyncope [None]
  - Unresponsive to stimuli [None]
  - Dizziness [None]
  - Brief resolved unexplained event [None]
  - Feeling abnormal [None]

NARRATIVE: CASE EVENT DATE: 20230423
